FAERS Safety Report 18454698 (Version 1)
Quarter: 2020Q4

REPORT INFORMATION
  Report Type: Spontaneous
  Country: JP (occurrence: JP)
  Receive Date: 20201103
  Receipt Date: 20201103
  Transmission Date: 20210114
  Serious: Yes (Death, Other)
  Sender: FDA-Public Use
  Company Number: JP-CHEPLA-C20203180

PATIENT
  Age: 82 Year
  Sex: Male
  Weight: 62.9 kg

DRUGS (2)
  1. GANCICLOVIR. [Suspect]
     Active Substance: GANCICLOVIR
     Indication: CYTOMEGALOVIRUS INFECTION
     Dates: start: 20190807
  2. AZULENE SODIUM SULFONATE [Concomitant]
     Active Substance: SODIUM DECAHYDROAZULENE-1-SULFONATE

REACTIONS (4)
  - Respiratory failure [Fatal]
  - Renal impairment [Unknown]
  - Myelosuppression [Unknown]
  - Pneumocystis jirovecii pneumonia [Unknown]

NARRATIVE: CASE EVENT DATE: 20190818
